FAERS Safety Report 16861070 (Version 1)
Quarter: 2019Q3

REPORT INFORMATION
  Report Type: Report from Study
  Country: US (occurrence: US)
  Receive Date: 20190927
  Receipt Date: 20190927
  Transmission Date: 20191005
  Serious: Yes (Other)
  Sender: FDA-Public Use
  Company Number: US-GILEAD-2019-0428619

PATIENT
  Age: 39 Year
  Sex: Female

DRUGS (4)
  1. ADCIRCA [Concomitant]
     Active Substance: TADALAFIL
  2. AMBRISENTAN [Suspect]
     Active Substance: AMBRISENTAN
     Indication: PRODUCT USED FOR UNKNOWN INDICATION
     Dosage: 10 MG, QD
     Route: 048
     Dates: start: 20160428
  3. VELETRI [Concomitant]
     Active Substance: EPOPROSTENOL
  4. COUMADIN [Concomitant]
     Active Substance: WARFARIN SODIUM

REACTIONS (13)
  - Migraine [Recovered/Resolved]
  - Cough [Recovered/Resolved]
  - Rash [Not Recovered/Not Resolved]
  - Systemic lupus erythematosus [Unknown]
  - Dyspnoea [Unknown]
  - Cardiac disorder [Unknown]
  - Flushing [Unknown]
  - Angina pectoris [Unknown]
  - Toothache [Recovered/Resolved]
  - Diarrhoea [Recovered/Resolved]
  - Nasal congestion [Not Recovered/Not Resolved]
  - Pain in jaw [Recovered/Resolved]
  - Decreased appetite [Recovered/Resolved]
